FAERS Safety Report 5073448-2 (Version None)
Quarter: 2006Q3

REPORT INFORMATION
  Report Type: 
  Country: None (occurrence: None)
  Receive Date: 20060808
  Receipt Date: 20060601
  Transmission Date: 20061208
  Serious: Yes (Other)
  Sender: FDA-Public Use
  Company Number: US-BAYER-200613793BWH

PATIENT
  Age: 42 Year
  Sex: Male
  Weight: 69 kg

DRUGS (13)
  1. CIPRO [Suspect]
     Indication: DRUG USE FOR UNKNOWN INDICATION
     Dosage: TOTAL DAILY DOSE: 1000 MG  UNIT DOSE: 500 MG
     Route: 048
     Dates: start: 19980101, end: 19980101
  2. CIPRO XR [Suspect]
     Indication: DRUG USE FOR UNKNOWN INDICATION
     Dosage: TOTAL DAILY DOSE: 1000 MG  UNIT DOSE: 1000 MG
     Route: 048
     Dates: start: 20040401, end: 20040101
  3. NEURONTIN [Concomitant]
     Indication: PAIN
     Dosage: TOTAL DAILY DOSE: 1200 MG  UNIT DOSE: 600 MG
  4. EFFEXOR XR [Concomitant]
     Indication: DEPRESSION
     Dosage: TOTAL DAILY DOSE: 75 MG  UNIT DOSE: 75 MG
  5. ATIVAN [Concomitant]
     Indication: ANXIETY
     Dosage: TOTAL DAILY DOSE: 3 MG  UNIT DOSE: 1 MG
  6. NEXIUM [Concomitant]
     Indication: GASTROOESOPHAGEAL REFLUX DISEASE
     Dosage: TOTAL DAILY DOSE: 40 MG  UNIT DOSE: 40 MG
  7. DURAGESIC-100 [Concomitant]
     Indication: PAIN
     Dosage: TOTAL DAILY DOSE: 50 ?G  UNIT DOSE: 50 ?G
     Route: 062
  8. LORCET-HD [Concomitant]
     Indication: PAIN
  9. COMBUNOX [Concomitant]
     Indication: PAIN
  10. SKELAXIN [Concomitant]
     Indication: PAIN
  11. FLEXERIL [Concomitant]
     Indication: PAIN
  12. TEQUIN [Concomitant]
  13. LEVAQUIN [Concomitant]

REACTIONS (13)
  - ARTHRALGIA [None]
  - GUN SHOT WOUND [None]
  - INSOMNIA [None]
  - MUSCLE RUPTURE [None]
  - MYALGIA [None]
  - ONYCHOCLASIS [None]
  - PAIN [None]
  - PANIC ATTACK [None]
  - RASH GENERALISED [None]
  - RECTAL HAEMORRHAGE [None]
  - SKIN LESION [None]
  - SWELLING FACE [None]
  - TENDON RUPTURE [None]
